FAERS Safety Report 23132540 (Version 2)
Quarter: 2025Q1

REPORT INFORMATION
  Report Type: Spontaneous
  Country: CA (occurrence: CA)
  Receive Date: 20231101
  Receipt Date: 20250128
  Transmission Date: 20250408
  Serious: Yes (Hospitalization, Other)
  Sender: SANDOZ
  Company Number: CA-002147023-NVSC2023CA030617

PATIENT
  Sex: Male
  Weight: 38 kg

DRUGS (22)
  1. ADVAIR HFA [Suspect]
     Active Substance: FLUTICASONE PROPIONATE\SALMETEROL XINAFOATE
     Indication: Product used for unknown indication
     Route: 065
  2. ADVAIR HFA [Suspect]
     Active Substance: FLUTICASONE PROPIONATE\SALMETEROL XINAFOATE
     Route: 065
  3. ALVESCO [Suspect]
     Active Substance: CICLESONIDE
     Indication: Product used for unknown indication
     Route: 065
  4. ALVESCO [Suspect]
     Active Substance: CICLESONIDE
     Route: 065
  5. BUDESONIDE\FORMOTEROL FUMARATE [Suspect]
     Active Substance: BUDESONIDE\FORMOTEROL FUMARATE
     Route: 055
  6. BUDESONIDE\FORMOTEROL FUMARATE [Suspect]
     Active Substance: BUDESONIDE\FORMOTEROL FUMARATE
     Indication: Product used for unknown indication
     Route: 065
  7. BUDESONIDE\FORMOTEROL FUMARATE [Suspect]
     Active Substance: BUDESONIDE\FORMOTEROL FUMARATE
     Route: 065
  8. CICLESONIDE [Suspect]
     Active Substance: CICLESONIDE
     Indication: Product used for unknown indication
     Route: 065
  9. HYDROCORTISONE [Suspect]
     Active Substance: HYDROCORTISONE
     Indication: Product used for unknown indication
     Route: 065
  10. HYDROCORTISONE [Suspect]
     Active Substance: HYDROCORTISONE
     Route: 065
  11. LANSOPRAZOLE [Suspect]
     Active Substance: LANSOPRAZOLE
     Indication: Product used for unknown indication
     Route: 065
  12. MAGNESIUM SULFATE [Suspect]
     Active Substance: MAGNESIUM SULFATE
     Indication: Product used for unknown indication
     Route: 065
  13. PREDNISONE [Suspect]
     Active Substance: PREDNISONE
     Indication: Product used for unknown indication
     Route: 065
  14. ALBUTEROL SULFATE [Suspect]
     Active Substance: ALBUTEROL SULFATE
     Route: 065
  15. ALBUTEROL SULFATE [Suspect]
     Active Substance: ALBUTEROL SULFATE
     Indication: Product used for unknown indication
     Route: 065
  16. SYMBICORT [Suspect]
     Active Substance: BUDESONIDE\FORMOTEROL FUMARATE DIHYDRATE
     Indication: Product used for unknown indication
     Route: 055
  17. TIOTROPIUM BROMIDE MONOHYDRATE [Suspect]
     Active Substance: TIOTROPIUM BROMIDE MONOHYDRATE
     Indication: Product used for unknown indication
     Dosage: 2 DOSAGE FORM, BID
     Route: 065
  18. TIOTROPIUM BROMIDE MONOHYDRATE [Suspect]
     Active Substance: TIOTROPIUM BROMIDE MONOHYDRATE
     Route: 048
  19. TIOTROPIUM BROMIDE MONOHYDRATE [Suspect]
     Active Substance: TIOTROPIUM BROMIDE MONOHYDRATE
     Route: 065
  20. ALBUTEROL SULFATE [Suspect]
     Active Substance: ALBUTEROL SULFATE
     Indication: Product used for unknown indication
     Route: 065
  21. ALBUTEROL SULFATE [Suspect]
     Active Substance: ALBUTEROL SULFATE
     Route: 055
  22. VITAMIN D [Suspect]
     Active Substance: VITAMIN D NOS
     Indication: Product used for unknown indication
     Route: 065

REACTIONS (24)
  - Adrenal insufficiency [Recovered/Resolved]
  - Adrenal suppression [Recovered/Resolved]
  - Asthma [Recovered/Resolved]
  - Back pain [Recovered/Resolved]
  - Bronchiectasis [Recovered/Resolved]
  - Disease recurrence [Recovered/Resolved]
  - Dyspnoea [Recovered/Resolved]
  - Eczema [Recovered/Resolved]
  - Erythema [Recovered/Resolved]
  - Gingival disorder [Recovered/Resolved]
  - Lip swelling [Recovered/Resolved]
  - Obstructive airways disorder [Recovered/Resolved]
  - Oral disorder [Recovered/Resolved]
  - Respiratory arrest [Recovered/Resolved]
  - Respiratory disorder [Recovered/Resolved]
  - Skin irritation [Recovered/Resolved]
  - Skin lesion [Recovered/Resolved]
  - Sleep disorder due to a general medical condition [Recovered/Resolved]
  - Wheezing [Recovered/Resolved]
  - Loss of personal independence in daily activities [Recovered/Resolved]
  - Rash [Recovered/Resolved]
  - Urticaria [Recovered/Resolved]
  - Angioedema [Recovered/Resolved]
  - Therapeutic product effect incomplete [Recovered/Resolved]
